FAERS Safety Report 21575445 (Version 5)
Quarter: 2023Q1

REPORT INFORMATION
  Report Type: Other
  Country: TR (occurrence: None)
  Receive Date: 20221110
  Receipt Date: 20230227
  Transmission Date: 20230417
  Serious: Yes (Hospitalization, Other)
  Sender: FDA-Public Use
  Company Number: TR-ROCHE-3076477

PATIENT
  Age: 17 Year
  Sex: Male
  Weight: 61 kg

DRUGS (1)
  1. ENTRECTINIB [Suspect]
     Active Substance: ENTRECTINIB
     Indication: Neoplasm
     Dosage: 200 MG * 3 / 600 MG, 24 HOURS, 200 MG 2 / 400 MG
     Route: 048
     Dates: start: 20220223

REACTIONS (4)
  - Neutropenia [Not Recovered/Not Resolved]
  - Troponin increased [Not Recovered/Not Resolved]
  - Liver function test increased [Recovered/Resolved]
  - Troponin increased [Recovered/Resolved]

NARRATIVE: CASE EVENT DATE: 20220401
